FAERS Safety Report 24310062 (Version 1)
Quarter: 2024Q3

REPORT INFORMATION
  Report Type: Spontaneous
  Country: US (occurrence: None)
  Receive Date: 20240912
  Receipt Date: 20240912
  Transmission Date: 20241016
  Serious: Yes (Other)
  Sender: ASTRAZENECA
  Company Number: 2024A204828

PATIENT
  Sex: Female

DRUGS (8)
  1. BREZTRI [Suspect]
     Active Substance: BUDESONIDE\FORMOTEROL\GLYCOPYRROLATE
     Route: 055
  2. SYMBICORT [Suspect]
     Active Substance: BUDESONIDE\FORMOTEROL FUMARATE DIHYDRATE
     Dosage: UNKNOWN UNKNOWN
     Route: 055
  3. LISINOPRIL [Suspect]
     Active Substance: LISINOPRIL
     Route: 048
  4. VENTOLIN [Concomitant]
     Active Substance: ALBUTEROL SULFATE
  5. PREDNISONE [Concomitant]
     Active Substance: PREDNISONE
  6. TRAZODONE [Concomitant]
     Active Substance: TRAZODONE HYDROCHLORIDE
  7. BENZONATATE [Concomitant]
     Active Substance: BENZONATATE
  8. FLUPHENAZINE [Concomitant]
     Active Substance: FLUPHENAZINE

REACTIONS (1)
  - Fall [Unknown]
